FAERS Safety Report 11217705 (Version 2)
Quarter: 2016Q3

REPORT INFORMATION
  Report Type: Spontaneous
  Country: DK (occurrence: DK)
  Receive Date: 20150625
  Receipt Date: 20160804
  Transmission Date: 20161109
  Serious: Yes (Hospitalization)
  Sender: FDA-Public Use
  Company Number: DK-ROCHE-1598048

PATIENT
  Age: 63 Year
  Sex: Female

DRUGS (3)
  1. XGEVA [Suspect]
     Active Substance: DENOSUMAB
     Indication: METASTASES TO BONE
     Route: 065
     Dates: start: 20130417
  2. BONDRONAT [Suspect]
     Active Substance: IBANDRONIC ACID
     Indication: METASTASES TO BONE
     Route: 048
     Dates: start: 20080701, end: 20130101
  3. ZOMETA [Suspect]
     Active Substance: ZOLEDRONIC ACID
     Indication: METASTASES TO BONE
     Route: 065
     Dates: start: 20130122, end: 20130417

REACTIONS (4)
  - Osteonecrosis of jaw [Recovering/Resolving]
  - Sequestrectomy [Recovered/Resolved]
  - Exposed bone in jaw [Unknown]
  - Tooth extraction [Recovered/Resolved]

NARRATIVE: CASE EVENT DATE: 20140915
